FAERS Safety Report 7969351-8 (Version None)
Quarter: 2011Q4

REPORT INFORMATION
  Report Type: 
  Country: None (occurrence: None)
  Receive Date: 20111210
  Receipt Date: 20111207
  Transmission Date: 20120403
  Serious: Yes (Life-Threatening, Hospitalization, Other)
  Sender: FDA-Public Use
  Company Number: ES-BAYER-2011-118077

PATIENT
  Age: 5 Year
  Sex: Female

DRUGS (3)
  1. PENICILLIN [Suspect]
  2. IBUPROFEN [Suspect]
  3. ACETAMINOPHEN [Suspect]

REACTIONS (9)
  - LACRIMATION INCREASED [None]
  - BLINDNESS [None]
  - PHOTOPHOBIA [None]
  - CHROMATOPSIA [None]
  - VULVAR EROSION [None]
  - IRIS ADHESIONS [None]
  - DISTICHIASIS [None]
  - ATROPHIC GLOSSITIS [None]
  - TOXIC EPIDERMAL NECROLYSIS [None]
